FAERS Safety Report 7537062-9 (Version None)
Quarter: 2011Q2

REPORT INFORMATION
  Report Type: 
  Country: None (occurrence: None)
  Receive Date: 20110609
  Receipt Date: 20110530
  Transmission Date: 20111010
  Serious: Yes (Disabling)
  Sender: FDA-Public Use
  Company Number: PHHY2011BE48066

PATIENT
  Sex: Male

DRUGS (2)
  1. IMURAN [Concomitant]
     Indication: MYASTHENIA GRAVIS
     Dosage: 150 MG, TID
  2. DIOVAN HCT [Suspect]
     Indication: HYPERTENSION

REACTIONS (1)
  - MYASTHENIA GRAVIS [None]
